FAERS Safety Report 21451507 (Version 2)
Quarter: 2022Q4

REPORT INFORMATION
  Report Type: Spontaneous
  Country: CA (occurrence: CA)
  Receive Date: 20221013
  Receipt Date: 20221028
  Transmission Date: 20230113
  Serious: Yes (Hospitalization)
  Sender: FDA-Public Use
  Company Number: CA-TEVA-2022-CA-2081674

PATIENT
  Age: 35 Year
  Sex: Male

DRUGS (10)
  1. CLOZAPINE [Suspect]
     Active Substance: CLOZAPINE
     Indication: Product used for unknown indication
     Dosage: CLOZAPINE 400 MG AT BEDTIME, GRADUALLY INTRODUCED A MONTH BEFORE HIS PRESENTATION
     Route: 065
  2. OLANZAPINE [Suspect]
     Active Substance: OLANZAPINE
     Indication: Product used for unknown indication
     Dosage: OLANZAPINE 5 MG AS NEEDED
     Route: 065
  3. OLANZAPINE [Suspect]
     Active Substance: OLANZAPINE
     Dosage: 10 MILLIGRAM DAILY; OLANZAPINE 10 MG DAILY WAS INTRODUCED ON THE DAY 7 OF ADMISSION, AND WAS TITRATE
     Route: 065
  4. OLANZAPINE [Suspect]
     Active Substance: OLANZAPINE
     Dosage: DISCHARGED WITH OLANZAPINE 5 MG IN THE MORNING
     Route: 065
  5. OLANZAPINE [Suspect]
     Active Substance: OLANZAPINE
     Dosage: DISCHARGED WITH OLANZAPINE 15 MG AT BEDTIME
     Route: 065
  6. PALIPERIDONE PALMITATE [Suspect]
     Active Substance: PALIPERIDONE PALMITATE
     Indication: Product used for unknown indication
     Dosage: INJECTIONS OF PALIPERIDONE PALMITATE 350 MG EVERY 3 MONTHS
     Route: 065
  7. SODIUM CHLORIDE [Suspect]
     Active Substance: SODIUM CHLORIDE
     Indication: Product used for unknown indication
     Dosage: 150 ML OF 3% SODIUM CHLORIDE ADMINISTERED OVER 20 MINUTES
     Route: 065
  8. SODIUM CHLORIDE [Suspect]
     Active Substance: SODIUM CHLORIDE
     Dosage: 2400 ML DAILY; INFUSION OF 0.9% SODIUM CHLORIDE AT A RATE OF 100 ML/H FOR 3 HOURS
     Route: 041
  9. SODIUM CHLORIDE [Suspect]
     Active Substance: SODIUM CHLORIDE
     Dosage: INFUSION OF 0.45% SODIUM CHLORIDE, AT A RATE VARYING BETWEEN 80 AND 250 ML/H, AND WAS CONTINUED F...
     Route: 065
  10. ATROPINE [Concomitant]
     Active Substance: ATROPINE
     Indication: Product used for unknown indication
     Dosage: SUBLINGUAL ATROPINE 1% DROPS AT BEDTIME
     Route: 060

REACTIONS (8)
  - Rhabdomyolysis [Recovering/Resolving]
  - Tachycardia [Recovering/Resolving]
  - Hyperhidrosis [Recovering/Resolving]
  - Tremor [Recovering/Resolving]
  - Confusional state [Recovering/Resolving]
  - Pain [Recovering/Resolving]
  - Blood sodium increased [Recovering/Resolving]
  - Product administration error [Unknown]
